FAERS Safety Report 7502632-0 (Version None)
Quarter: 2011Q2

REPORT INFORMATION
  Report Type: 
  Country: None (occurrence: None)
  Receive Date: 20110525
  Receipt Date: 20110512
  Transmission Date: 20111010
  Serious: Yes (Other)
  Sender: FDA-Public Use
  Company Number: PHHY2011US25217

PATIENT
  Sex: Male

DRUGS (1)
  1. GLEEVEC [Suspect]
     Indication: MALIGNANT SOFT TISSUE NEOPLASM
     Dosage: 400 MG, QD
     Route: 048
     Dates: start: 20101119

REACTIONS (10)
  - IRRITABILITY [None]
  - DIARRHOEA [None]
  - INSOMNIA [None]
  - ERYTHEMA [None]
  - DRY SKIN [None]
  - ABNORMAL FAECES [None]
  - MUSCLE SPASMS [None]
  - HANGOVER [None]
  - FATIGUE [None]
  - FLUSHING [None]
